FAERS Safety Report 14544913 (Version 4)
Quarter: 2018Q2

REPORT INFORMATION
  Report Type: Spontaneous
  Country: IT (occurrence: IT)
  Receive Date: 20180217
  Receipt Date: 20180607
  Transmission Date: 20180711
  Serious: Yes (Other)
  Sender: FDA-Public Use
  Company Number: IT-MYLANLABS-2018M1010126

PATIENT
  Age: 53 Year
  Sex: Male
  Weight: 116 kg

DRUGS (6)
  1. DOXORUBICIN [Suspect]
     Active Substance: DOXORUBICIN
     Indication: ADRENOCORTICAL CARCINOMA
     Dosage: 40 MG/M2, UNK, DOXORUBIN ON DAY 1^ETOPOSIDE ON DAY 2, 3 AND 4^CISPLATIN ON DAY 3 AND 4
     Route: 042
  2. ETOPOSIDE. [Suspect]
     Active Substance: ETOPOSIDE
     Indication: ADRENOCORTICAL CARCINOMA
     Dosage: 100 MG/M2, UNK ( (DOXORUBIN ON DAY 1 ETOPOSIDE ON DAY 2,3 AND 4 CISPLATIN ON DAY 3 AND 4)
     Route: 042
  3. METYRAPONE [Suspect]
     Active Substance: METYRAPONE
     Indication: CUSHING^S SYNDROME
     Dosage: 750 MG, QD (250 MG, THREE TIMES A DAY)
     Route: 048
  4. G-CSF [Concomitant]
     Active Substance: GRANULOCYTE COLONY-STIMULATING FACTOR NOS
     Indication: PROPHYLAXIS
     Dosage: UNK
  5. CISPLATIN. [Suspect]
     Active Substance: CISPLATIN
     Indication: ADRENOCORTICAL CARCINOMA
     Dosage: 40 MG/M2, UNK  (DOXORUBIN ON DAY 1 ETOPOSIDE ON DAY 2,3 AND 4 CISPLATIN ON DAY 3 AND 4)
     Route: 042
  6. MITOTANE [Suspect]
     Active Substance: MITOTANE
     Indication: ADRENOCORTICAL CARCINOMA
     Dosage: 3 G, QD
     Route: 048

REACTIONS (4)
  - Product use in unapproved indication [Unknown]
  - Asthenia [Unknown]
  - Therapeutic response decreased [Unknown]
  - Anaemia [Recovered/Resolved]
